FAERS Safety Report 8843376 (Version 3)
Quarter: 2014Q2

REPORT INFORMATION
  Report Type: Spontaneous
  Country: US (occurrence: US)
  Receive Date: 20121016
  Receipt Date: 20131018
  Transmission Date: 20141212
  Serious: Yes (Hospitalization, Other)
  Sender: FDA-Public Use
  Company Number: US-PFIZER INC-2012252719

PATIENT
  Age: 76 Year
  Sex: Male
  Weight: 94.33 kg

DRUGS (1)
  1. DEPO-MEDROL [Suspect]
     Indication: BACK PAIN
     Dosage: 80 MG, SINGLE
     Route: 008
     Dates: start: 20120910

REACTIONS (6)
  - Off label use [Recovering/Resolving]
  - Convulsion [Recovering/Resolving]
  - Dyspnoea [Recovering/Resolving]
  - Pyrexia [Recovering/Resolving]
  - Hypertension [Recovering/Resolving]
  - Brain oedema [Recovering/Resolving]
